FAERS Safety Report 4410459-1 (Version None)
Quarter: 2004Q3

REPORT INFORMATION
  Report Type: 
  Country: None (occurrence: None)
  Receive Date: 20040729
  Receipt Date: 20040727
  Transmission Date: 20050211
  Serious: Yes (Hospitalization)
  Sender: FDA-Public Use
  Company Number: US-MERCK-0407USA02281

PATIENT
  Age: 71 Year
  Sex: Male

DRUGS (1)
  1. DECADRON [Suspect]
     Route: 048

REACTIONS (7)
  - ASTHENIA [None]
  - ATRIAL FIBRILLATION [None]
  - CHOLECYSTITIS [None]
  - DEEP VEIN THROMBOSIS [None]
  - HYPOTENSION [None]
  - PULMONARY EMBOLISM [None]
  - RASH VESICULAR [None]
